FAERS Safety Report 9322896 (Version 2)
Quarter: 2013Q3

REPORT INFORMATION
  Report Type: Spontaneous
  Country: US (occurrence: US)
  Receive Date: 20130601
  Receipt Date: 20130809
  Transmission Date: 20140515
  Serious: Yes (Hospitalization, Other)
  Sender: FDA-Public Use
  Company Number: US-ASTRAZENECA-2013SE38647

PATIENT
  Age: 73 Year
  Sex: Female

DRUGS (25)
  1. NEXIUM [Suspect]
     Indication: GASTROOESOPHAGEAL REFLUX DISEASE
     Route: 048
  2. NEXIUM [Suspect]
     Indication: GASTROOESOPHAGEAL REFLUX DISEASE
     Route: 048
  3. NEXIUM [Suspect]
     Indication: DYSPEPSIA
     Route: 048
  4. NEXIUM [Suspect]
     Indication: GASTROOESOPHAGEAL REFLUX DISEASE
     Dosage: ONCE A DAY
     Route: 048
     Dates: start: 20060314, end: 20110110
  5. NEXIUM [Suspect]
     Indication: GASTROOESOPHAGEAL REFLUX DISEASE
     Dosage: ONCE A DAY
     Route: 048
     Dates: start: 20060314, end: 20110110
  6. NEXIUM [Suspect]
     Indication: DYSPEPSIA
     Dosage: ONCE A DAY
     Route: 048
     Dates: start: 20060314, end: 20110110
  7. NEXIUM [Suspect]
     Indication: GASTROOESOPHAGEAL REFLUX DISEASE
     Route: 048
     Dates: start: 20060314
  8. NEXIUM [Suspect]
     Indication: GASTROOESOPHAGEAL REFLUX DISEASE
     Route: 048
     Dates: start: 20060314
  9. NEXIUM [Suspect]
     Indication: DYSPEPSIA
     Route: 048
     Dates: start: 20060314
  10. PENTOXIFYLLINE [Concomitant]
     Dosage: ONE TO THREEE TIMES A DAY
  11. LORZEPAM [Concomitant]
     Indication: MOOD ALTERED
  12. BUPROPION [Concomitant]
     Indication: ANXIETY
  13. GABAPENTIN [Concomitant]
     Indication: NEURALGIA
  14. GLIPIZIDE [Concomitant]
     Indication: BLOOD GLUCOSE ABNORMAL
  15. FUROSEMIDE [Concomitant]
     Indication: CARDIAC FAILURE CONGESTIVE
  16. SIMVASTATIN [Concomitant]
     Indication: BLOOD CHOLESTEROL
  17. QUETIAPINE [Concomitant]
     Indication: MANIA
  18. LEVOTHYROXINE [Concomitant]
     Indication: THYROID DISORDER
  19. ZOLPIDEM [Concomitant]
     Indication: SLEEP DISORDER
  20. METFORMIN [Concomitant]
  21. CALTRATE [Concomitant]
  22. ESTROGEN [Concomitant]
  23. PROTESGEN [Concomitant]
  24. PREDNISONE [Concomitant]
     Route: 048
     Dates: start: 20031231
  25. LISINOPRIL [Concomitant]
     Dates: start: 20110110

REACTIONS (7)
  - Femur fracture [Unknown]
  - Gait disturbance [Unknown]
  - Transient ischaemic attack [Unknown]
  - Osteoporosis [Unknown]
  - Bone density decreased [Unknown]
  - Calcium deficiency [Unknown]
  - Depression [Unknown]
